FAERS Safety Report 4755918-7 (Version None)
Quarter: 2005Q3

REPORT INFORMATION
  Report Type: 
  Country: None (occurrence: None)
  Receive Date: 20050830
  Receipt Date: 20050824
  Transmission Date: 20060218
  Serious: Yes (Hospitalization)
  Sender: FDA-Public Use
  Company Number: JP-ABBOTT-05P-087-0309462-00

PATIENT
  Sex: Male

DRUGS (11)
  1. KALETRA [Suspect]
     Indication: HIV INFECTION
     Route: 048
     Dates: start: 20041006, end: 20050105
  2. KALETRA [Suspect]
     Route: 048
     Dates: start: 20050309
  3. LAMIVUDINE [Concomitant]
     Indication: HIV INFECTION
     Route: 048
     Dates: start: 20041006, end: 20050105
  4. LAMIVUDINE [Concomitant]
     Route: 048
     Dates: start: 20050309
  5. STAVUDINE [Concomitant]
     Indication: HIV INFECTION
     Route: 048
     Dates: start: 20041006, end: 20050105
  6. STAVUDINE [Concomitant]
     Route: 048
     Dates: start: 20050309
  7. BACTRIM [Concomitant]
     Indication: INFECTION PROPHYLAXIS
     Dates: start: 20040820, end: 20040915
  8. VALPROATE SODIUM [Concomitant]
     Indication: ANXIETY DISORDER
     Dates: start: 20040824, end: 20040831
  9. VALPROATE SODIUM [Concomitant]
     Dates: start: 20040901, end: 20041130
  10. VALPROATE SODIUM [Concomitant]
     Dates: start: 20041201, end: 20041222
  11. PENTAMIDINE ISETHIONATE [Concomitant]
     Indication: INFECTION PROPHYLAXIS
     Dates: start: 20040902, end: 20041201

REACTIONS (2)
  - CONDYLOMA ACUMINATUM [None]
  - DIARRHOEA [None]
